FAERS Safety Report 20050937 (Version 2)
Quarter: 2021Q4

REPORT INFORMATION
  Report Type: Spontaneous
  Country: US (occurrence: US)
  Receive Date: 20211110
  Receipt Date: 20211119
  Transmission Date: 20220304
  Serious: No
  Sender: FDA-Public Use
  Company Number: US-HETERO-HET2021US02045

PATIENT

DRUGS (10)
  1. TORSEMIDE [Suspect]
     Active Substance: TORSEMIDE
     Indication: Peripheral swelling
     Dosage: 20 MILLIGRAM, QD
     Route: 048
     Dates: end: 202110
  2. TORSEMIDE [Suspect]
     Active Substance: TORSEMIDE
     Indication: Joint swelling
  3. TAFAMIDIS [Suspect]
     Active Substance: TAFAMIDIS
     Indication: Cardiac amyloidosis
     Dosage: 61 MG, VYNDAMAX
     Route: 065
  4. ASPIRIN                            /00002701/ [Concomitant]
     Indication: Cardiac rehabilitation therapy
     Dosage: 81 MG, QD
     Route: 065
  5. ELIQUIS [Concomitant]
     Active Substance: APIXABAN
     Indication: Thrombosis
     Dosage: 5 MG, B.I.D.
     Route: 065
     Dates: start: 2017
  6. METOPROLOL [Concomitant]
     Active Substance: METOPROLOL
     Indication: Hypertension
     Dosage: 25 MG, QD
     Route: 065
     Dates: start: 202104
  7. DILTIAZEM [Concomitant]
     Active Substance: DILTIAZEM
     Indication: Hypertension
     Dosage: 180 MG, QD
     Route: 065
     Dates: start: 2018
  8. OMEPRAZOLE [Concomitant]
     Active Substance: OMEPRAZOLE
     Indication: Gastrooesophageal reflux disease
     Dosage: 20 MG, QD
     Route: 065
  9. ROSUVASTATIN CALCIUM [Concomitant]
     Active Substance: ROSUVASTATIN CALCIUM
     Indication: Blood cholesterol increased
     Dosage: 20 MG, QD
     Route: 065
  10. TERBINAFINE [Concomitant]
     Active Substance: TERBINAFINE
     Indication: Nail infection
     Dosage: 250 MG, QD
     Route: 065

REACTIONS (3)
  - Fatigue [Recovered/Resolved]
  - Dehydration [Recovered/Resolved]
  - Urine output increased [Recovered/Resolved]
